FAERS Safety Report 7204666-2 (Version None)
Quarter: 2010Q4

REPORT INFORMATION
  Report Type: 
  Country: None (occurrence: None)
  Receive Date: 20101230
  Receipt Date: 20101220
  Transmission Date: 20110411
  Serious: Yes (Other)
  Sender: FDA-Public Use
  Company Number: US-PFIZER INC-2010176703

PATIENT
  Sex: Male

DRUGS (1)
  1. GEODON [Suspect]
     Dosage: 40 2X/DAY ON DAY 1 AND 80 2X/DAY ON DAY 2

REACTIONS (2)
  - DYSPNOEA [None]
  - SWOLLEN TONGUE [None]
